FAERS Safety Report 20503875 (Version 1)
Quarter: 2022Q1

REPORT INFORMATION
  Report Type: Spontaneous
  Country: JP (occurrence: JP)
  Receive Date: 20220222
  Receipt Date: 20220222
  Transmission Date: 20220423
  Serious: Yes (Hospitalization)
  Sender: FDA-Public Use
  Company Number: JP-MSD-2202JPN002617J

PATIENT
  Age: 70 Year
  Sex: Female
  Weight: 61 kg

DRUGS (12)
  1. KEYTRUDA [Suspect]
     Active Substance: PEMBROLIZUMAB
     Indication: Bladder cancer
     Dosage: 200 MILLIGRAM, ONCE
     Route: 041
     Dates: start: 20211206, end: 20211206
  2. ELNEOPA NF NO.1 [Concomitant]
     Dosage: UNK
     Route: 051
     Dates: start: 20211127, end: 20211221
  3. LEVOFLOXACIN HEMIHYDRATE [Concomitant]
     Active Substance: LEVOFLOXACIN
     Dosage: UNK
     Route: 041
     Dates: start: 20211209, end: 20211221
  4. OXYCODONE HYDROCHLORIDE [Concomitant]
     Active Substance: OXYCODONE HYDROCHLORIDE
     Dosage: UNK
     Route: 051
     Dates: start: 20211209, end: 20211222
  5. ACETAMINOPHEN [Concomitant]
     Active Substance: ACETAMINOPHEN
     Dosage: UNK
     Route: 042
     Dates: start: 20211124, end: 20211214
  6. PRIMPERAN [Concomitant]
     Active Substance: METOCLOPRAMIDE HYDROCHLORIDE
     Dosage: UNK
     Route: 051
     Dates: start: 20211207, end: 20211212
  7. ELIQUIS [Concomitant]
     Active Substance: APIXABAN
     Dosage: UNK
     Route: 048
     Dates: start: 20211202, end: 20211222
  8. CELECOXIB [Concomitant]
     Active Substance: CELECOXIB
     Dosage: UNK
     Route: 048
     Dates: start: 20211202, end: 20211222
  9. FENTANYL [Concomitant]
     Active Substance: FENTANYL
     Dosage: UNK
     Route: 051
     Dates: start: 20211127, end: 20211222
  10. MIYA-BM [Concomitant]
     Active Substance: CLOSTRIDIUM BUTYRICUM SPORES STRAIN M-55
     Dosage: UNK
     Route: 048
  11. ABSTRAL [Concomitant]
     Active Substance: FENTANYL CITRATE
     Dosage: UNK
     Route: 048
     Dates: start: 20211209, end: 20211209
  12. HYDROMORPHONE HYDROCHLORIDE [Concomitant]
     Active Substance: HYDROMORPHONE HYDROCHLORIDE
     Dosage: UNK
     Route: 048
     Dates: start: 20211207, end: 20211207

REACTIONS (1)
  - Drug eruption [Recovered/Resolved]

NARRATIVE: CASE EVENT DATE: 20211209
